FAERS Safety Report 7077091-5 (Version None)
Quarter: 2010Q4

REPORT INFORMATION
  Report Type: 
  Country: None (occurrence: None)
  Receive Date: 20101101
  Receipt Date: 20101018
  Transmission Date: 20110411
  Serious: Yes (Other)
  Sender: FDA-Public Use
  Company Number: PHHY2010US51860

PATIENT
  Sex: Female

DRUGS (3)
  1. GENTEAL MODERATE LUBRICANT EYE DROPS (NVO) [Suspect]
     Dosage: ONE DROP
     Route: 047
     Dates: start: 20060213, end: 20090529
  2. RESTASIS [Concomitant]
     Dosage: 1 DF, BID
     Dates: start: 20060813
  3. REFRESH [Concomitant]
     Dosage: 1 DF, BID, PRN
     Dates: start: 20060918

REACTIONS (6)
  - BLINDNESS TRANSIENT [None]
  - DRY EYE [None]
  - EYE OEDEMA [None]
  - EYE PAIN [None]
  - OCULAR DISCOMFORT [None]
  - VISION BLURRED [None]
